FAERS Safety Report 9064555 (Version 1)
Quarter: 2013Q1

REPORT INFORMATION
  Report Type: Spontaneous
  Country: US (occurrence: US)
  Receive Date: 20130130
  Receipt Date: 20130130
  Transmission Date: 20140127
  Serious: Yes (Hospitalization)
  Sender: FDA-Public Use
  Company Number: US-AMGEN-USASP2013005029

PATIENT
  Age: 59 Year
  Sex: Female

DRUGS (2)
  1. ENBREL [Suspect]
     Indication: PSORIATIC ARTHROPATHY
     Dosage: 50 MG, QWK
     Dates: start: 20070315, end: 201211
  2. ENBREL [Suspect]
     Indication: PSORIASIS

REACTIONS (2)
  - Endometrial cancer [Recovered/Resolved]
  - Psoriasis [Not Recovered/Not Resolved]
